FAERS Safety Report 5384799-6 (Version None)
Quarter: 2007Q3

REPORT INFORMATION
  Report Type: 
  Country: None (occurrence: None)
  Receive Date: 20070711
  Receipt Date: 20070627
  Transmission Date: 20080115
  Serious: Yes (Other)
  Sender: FDA-Public Use
  Company Number: JP-PFIZER INC-2007055446

PATIENT
  Age: 31 Year
  Sex: Female

DRUGS (3)
  1. ATARAX [Suspect]
     Indication: ATOPY
     Dosage: FREQ:AS NEEDED
     Route: 048
  2. ALLELOCK [Concomitant]
  3. ZESULAN [Concomitant]

REACTIONS (1)
  - BLOOD PROLACTIN INCREASED [None]
